FAERS Safety Report 10184104 (Version 2)
Quarter: 2015Q1

REPORT INFORMATION
  Report Type: Spontaneous
  Country: US (occurrence: US)
  Receive Date: 20140520
  Receipt Date: 20150304
  Transmission Date: 20150720
  Serious: No
  Sender: FDA-Public Use
  Company Number: US-ASTRAZENECA-2013SE48746

PATIENT
  Age: 65 Year
  Sex: Female
  Weight: 52.2 kg

DRUGS (5)
  1. SYMVASTATIN [Concomitant]
     Indication: ARTERIAL DISORDER
     Route: 048
     Dates: start: 201301
  2. ASPIRIN. [Concomitant]
     Active Substance: ASPIRIN
     Indication: ANGIOPATHY
     Route: 048
     Dates: start: 201301
  3. HYDROCHLOROTHORAZIDE [Concomitant]
     Indication: HYPERTENSION
     Route: 048
     Dates: start: 1999
  4. BUDESONIDE. [Suspect]
     Active Substance: BUDESONIDE
     Indication: COLITIS MICROSCOPIC
     Route: 048
     Dates: start: 2006
  5. AMLODOPINE BESYLATE [Concomitant]
     Indication: HYPERTENSION
     Route: 048
     Dates: start: 1999

REACTIONS (9)
  - Diarrhoea [Recovered/Resolved]
  - Off label use [Unknown]
  - Peripheral arterial occlusive disease [Not Recovered/Not Resolved]
  - Flatulence [Recovered/Resolved]
  - Abdominal distension [Recovered/Resolved]
  - Contusion [Not Recovered/Not Resolved]
  - Drug dose omission [Unknown]
  - Arterial stenosis [Not Recovered/Not Resolved]
  - Intentional product misuse [Unknown]

NARRATIVE: CASE EVENT DATE: 2006
